FAERS Safety Report 22010547 (Version 2)
Quarter: 2023Q2

REPORT INFORMATION
  Report Type: Other
  Country: CA (occurrence: None)
  Receive Date: 20230220
  Receipt Date: 20230627
  Transmission Date: 20230721
  Serious: No
  Sender: FDA-Public Use
  Company Number: CA-ROCHE-2853457

PATIENT
  Sex: Female

DRUGS (1)
  1. OCREVUS [Suspect]
     Active Substance: OCRELIZUMAB
     Indication: Primary progressive multiple sclerosis
     Dosage: 300 MG AT DAY 0 AND 14, THEN 600 MG EVERY 6 MONTH
     Route: 042
     Dates: start: 20210615

REACTIONS (9)
  - Dizziness [Not Recovered/Not Resolved]
  - Memory impairment [Unknown]
  - Oral herpes [Recovered/Resolved]
  - Gait disturbance [Unknown]
  - Wound infection [Unknown]
  - Somnolence [Unknown]
  - Fall [Unknown]
  - Muscular weakness [Unknown]
  - Arthropathy [Unknown]
